FAERS Safety Report 5345076-2 (Version None)
Quarter: 2007Q2

REPORT INFORMATION
  Report Type: 
  Country: None (occurrence: None)
  Receive Date: 20070601
  Receipt Date: 20070517
  Transmission Date: 20071010
  Serious: Yes (Disabling, Other)
  Sender: FDA-Public Use
  Company Number: GB-1162951

PATIENT
  Age: 5 Year
  Sex: Female
  Weight: 0.0176 kg

DRUGS (1)
  1. ECONOCHLOR (CHLORAMPHENICOL) 0.5% SOLUTION (BTCH#S: UNK) [Suspect]
     Indication: CONJUNCTIVITIS
     Dosage: EYE DROPS, SOLUTION; STOP DATE DURATION 7WEEKS 1 DAY
     Route: 047

REACTIONS (4)
  - EYELID OEDEMA [None]
  - IDIOPATHIC THROMBOCYTOPENIC PURPURA [None]
  - LOCAL REACTION [None]
  - RASH MACULAR [None]
